FAERS Safety Report 18422791 (Version 1)
Quarter: 2020Q4

REPORT INFORMATION
  Report Type: Spontaneous
  Country: US (occurrence: US)
  Receive Date: 20201023
  Receipt Date: 20201023
  Transmission Date: 20210114
  Serious: No
  Sender: FDA-Public Use
  Company Number: US-PERRIGO-20US012346

PATIENT
  Sex: Male

DRUGS (1)
  1. NICOTINE POLACRILEX [Suspect]
     Active Substance: NICOTINE
     Indication: OFF LABEL USE
     Dosage: 4 MG, SINGLE
     Route: 002
     Dates: start: 202008, end: 202008

REACTIONS (2)
  - Oropharyngeal discomfort [Unknown]
  - Tongue discomfort [Unknown]

NARRATIVE: CASE EVENT DATE: 202008
